FAERS Safety Report 9995664 (Version 1)
Quarter: 2014Q1

REPORT INFORMATION
  Report Type: Spontaneous
  Country: US (occurrence: US)
  Receive Date: 20140311
  Receipt Date: 20140311
  Transmission Date: 20141002
  Serious: No
  Sender: FDA-Public Use
  Company Number: US-GALDERMA-US13002408

PATIENT
  Age: 50 Year
  Sex: Female

DRUGS (5)
  1. TRI-LUMA CREAM (FLUOCINOLONE ACETONIDE 0.01%, HYDROQUINONE 4%, TRETINO [Suspect]
     Indication: PIGMENTATION DISORDER
     Route: 061
     Dates: start: 201303, end: 201307
  2. TRETINOIN CREAM [Suspect]
     Indication: PIGMENTATION DISORDER
     Route: 061
     Dates: start: 201303, end: 201307
  3. OIL OF OLAY FOAMING WASH [Concomitant]
     Indication: THERAPEUTIC SKIN CARE TOPICAL
     Route: 061
  4. OIL OF OLAY MOISTURIZER [Concomitant]
     Indication: DRY SKIN PROPHYLAXIS
     Route: 061
  5. NEUTROGENA MOISTURIZER SPF 30 [Concomitant]
     Indication: DRY SKIN PROPHYLAXIS
     Route: 061

REACTIONS (4)
  - Drug ineffective [Not Recovered/Not Resolved]
  - Inappropriate schedule of drug administration [Not Recovered/Not Resolved]
  - Incorrect product storage [Not Recovered/Not Resolved]
  - Intentional drug misuse [Not Recovered/Not Resolved]
